FAERS Safety Report 15007430 (Version 1)
Quarter: 2018Q2

REPORT INFORMATION
  Report Type: Spontaneous
  Country: FR (occurrence: FR)
  Receive Date: 20180613
  Receipt Date: 20180613
  Transmission Date: 20180711
  Serious: Yes (Death, Other)
  Sender: FDA-Public Use
  Company Number: FR-ALLERGAN-1830062US

PATIENT
  Sex: Female

DRUGS (3)
  1. IMUREL [Suspect]
     Active Substance: AZATHIOPRINE SODIUM
     Indication: EXPOSURE DURING PREGNANCY
     Dosage: UNK MG, UNK
     Route: 064
  2. HYDROCORTISONE UNK [Suspect]
     Active Substance: HYDROCORTISONE
     Indication: EXPOSURE DURING PREGNANCY
     Route: 064
  3. PENTASA [Suspect]
     Active Substance: MESALAMINE
     Indication: EXPOSURE DURING PREGNANCY
     Dosage: UNK G, UNK
     Route: 064

REACTIONS (1)
  - Foetal death [Fatal]

NARRATIVE: CASE EVENT DATE: 201804
